FAERS Safety Report 16772989 (Version 1)
Quarter: 2019Q3

REPORT INFORMATION
  Report Type: Other
  Country: US (occurrence: GB)
  Receive Date: 20190904
  Receipt Date: 20190904
  Transmission Date: 20191005
  Serious: Yes (Other)
  Sender: FDA-Public Use
  Company Number: GB-B.BRAUN MEDICAL INC.-2074029

PATIENT
  Age: 10 Year
  Sex: Female

DRUGS (3)
  1. EXCHANGE TRANSFUSIONS [Concomitant]
  2. PENTOBARBITAL SODIUM. [Concomitant]
     Active Substance: PENTOBARBITAL SODIUM
  3. 20% MANNITOL INJECTION USP 0264-7578-10 0264-7578-20 [Suspect]
     Active Substance: MANNITOL

REACTIONS (1)
  - Hypophosphataemia [None]
